FAERS Safety Report 18899237 (Version 3)
Quarter: 2023Q1

REPORT INFORMATION
  Report Type: Spontaneous
  Country: IN (occurrence: IN)
  Receive Date: 20210216
  Receipt Date: 20230316
  Transmission Date: 20230418
  Serious: Yes (Death, Other)
  Sender: FDA-Public Use
  Company Number: IN-PFIZER INC-2021146508

PATIENT
  Age: 40 Year
  Sex: Male

DRUGS (10)
  1. METHYLPREDNISOLONE [Suspect]
     Active Substance: METHYLPREDNISOLONE
     Indication: Dermatomyositis
     Dosage: 4 MG, 1X/DAY
     Route: 048
  2. METHYLPREDNISOLONE SODIUM SUCCINATE [Suspect]
     Active Substance: METHYLPREDNISOLONE SODIUM SUCCINATE
     Indication: Dermatomyositis
     Dosage: 1 G
     Route: 042
  3. DEXAMETHASONE [Suspect]
     Active Substance: DEXAMETHASONE
     Indication: Dermatomyositis
     Dosage: (1 MG/KG/DAY PREDNISOLONE EQUIVALENT).
     Route: 042
  4. DEXAMETHASONE [Suspect]
     Active Substance: DEXAMETHASONE
     Dosage: 0.5 MG/KG/DAY OF PREDNISOLONE EQUIVALENT
     Route: 042
  5. DEXAMETHASONE [Suspect]
     Active Substance: DEXAMETHASONE
     Dosage: REDUCED TO 0.5 MG/KG/DAY OF PREDNISOLONE EQUIVALENT
     Route: 042
  6. DEXAMETHASONE [Suspect]
     Active Substance: DEXAMETHASONE
     Dosage: 1 MG/KG/DAY PREDNISOLONE EQUIVALENT
     Route: 042
  7. DAPTOMYCIN [Concomitant]
     Active Substance: DAPTOMYCIN
     Indication: Endocarditis
     Dosage: UNK
  8. LINEZOLID [Concomitant]
     Active Substance: LINEZOLID
     Indication: Endocarditis
     Dosage: UNK
  9. HUMAN IMMUNOGLOBULIN G [Concomitant]
     Active Substance: HUMAN IMMUNOGLOBULIN G
     Indication: Staphylococcal bacteraemia
     Dosage: 2 G/KG OVER 2 DAYS
     Route: 042
  10. VANCOMYCIN [Concomitant]
     Active Substance: VANCOMYCIN
     Indication: Staphylococcal infection
     Dosage: UNK
     Route: 051

REACTIONS (5)
  - Cardiac failure congestive [Fatal]
  - Endocarditis [Fatal]
  - Glomerulonephritis [Unknown]
  - Staphylococcal bacteraemia [Unknown]
  - Arthritis bacterial [Unknown]
